FAERS Safety Report 5811492-5 (Version None)
Quarter: 2008Q3

REPORT INFORMATION
  Report Type: 
  Country: None (occurrence: None)
  Receive Date: 20080714
  Receipt Date: 20080714
  Transmission Date: 20090109
  Serious: Yes (Hospitalization, Other)
  Sender: FDA-Public Use
  Company Number: None

PATIENT
  Sex: Female
  Weight: 72 kg

DRUGS (2)
  1. AROMASIN [Suspect]
     Indication: BREAST CANCER
     Dosage: 25 MG QD PO
     Route: 048
     Dates: start: 20080513, end: 20080610
  2. NAPROSYN [Concomitant]

REACTIONS (6)
  - CHOLECYSTITIS CHRONIC [None]
  - HEPATIC FAILURE [None]
  - HEPATITIS CHOLESTATIC [None]
  - OPEN WOUND [None]
  - SCRATCH [None]
  - WEIGHT DECREASED [None]
